FAERS Safety Report 24282407 (Version 1)
Quarter: 2024Q3

REPORT INFORMATION
  Report Type: Spontaneous
  Country: US (occurrence: US)
  Receive Date: 20240904
  Receipt Date: 20240904
  Transmission Date: 20241017
  Serious: No
  Sender: BRISTOL MYERS SQUIBB
  Company Number: US-BRISTOL-MYERS SQUIBB COMPANY-2024-140552

PATIENT
  Age: 44 Year
  Sex: Female
  Weight: 107.95 kg

DRUGS (1)
  1. POMALYST [Suspect]
     Active Substance: POMALIDOMIDE
     Indication: Plasma cell myeloma
     Route: 048
     Dates: start: 20230708

REACTIONS (3)
  - Illness [Recovering/Resolving]
  - Urinary tract infection [Recovered/Resolved]
  - Movement disorder [Recovering/Resolving]
